FAERS Safety Report 8802816 (Version 1)
Quarter: 2012Q4

REPORT INFORMATION
  Report Type: Report from Study
  Country: US (occurrence: US)
  Receive Date: 20120921
  Receipt Date: 20120921
  Transmission Date: 20130627
  Serious: No
  Sender: FDA-Public Use
  Company Number: US-009507513-1209USA007714

PATIENT

DRUGS (3)
  1. BLINDED ETONOGESTREL IMPLANT- IMPLANON NEXT [Suspect]
     Dosage: 68 mg, UNK
     Route: 059
     Dates: start: 20120808
  2. BLINDED POST TRIAL THERAPY [Suspect]
     Dosage: 68 mg, UNK
     Route: 059
     Dates: start: 20120808
  3. BLINDED PRE TRIAL THERAPY [Suspect]
     Dosage: 68 mg, UNK
     Route: 059
     Dates: start: 20120808

REACTIONS (2)
  - Device difficult to use [Unknown]
  - No adverse event [Unknown]
